FAERS Safety Report 24714799 (Version 2)
Quarter: 2025Q3

REPORT INFORMATION
  Report Type: Report from Study
  Country: MX (occurrence: MX)
  Receive Date: 20241210
  Receipt Date: 20250810
  Transmission Date: 20251021
  Serious: Yes (Other)
  Sender: ALEXION PHARMACEUTICALS
  Company Number: MX-AstraZeneca-CH-00759865A

PATIENT
  Sex: Male
  Weight: 94 kg

DRUGS (10)
  1. DAPAGLIFLOZIN [Suspect]
     Active Substance: DAPAGLIFLOZIN
     Indication: Type 2 diabetes mellitus
     Dosage: 10 MILLIGRAM, QD
     Dates: start: 20200101
  2. INSULIN NOS [Concomitant]
     Active Substance: INSULIN NOS
  3. FUROSEMIDE [Concomitant]
     Active Substance: FUROSEMIDE
  4. DIGOXIN [Concomitant]
     Active Substance: DIGOXIN
  5. SPIRONOLACTONE [Concomitant]
     Active Substance: SPIRONOLACTONE
  6. RIVAROXABAN [Concomitant]
     Active Substance: RIVAROXABAN
  7. ENTRESTO [Concomitant]
     Active Substance: SACUBITRIL\VALSARTAN
  8. BISOPROLOL [Concomitant]
     Active Substance: BISOPROLOL
  9. CALCIUM CARBONATE\ERGOCALCIFEROL\RETINOL [Concomitant]
     Active Substance: CALCIUM CARBONATE\ERGOCALCIFEROL\RETINOL
  10. ALLOPURINOL [Concomitant]
     Active Substance: ALLOPURINOL

REACTIONS (6)
  - Pulmonary oedema [Unknown]
  - Hypotension [Unknown]
  - Escherichia infection [Unknown]
  - Blood creatinine increased [Unknown]
  - Kidney infection [Unknown]
  - Renal failure [Unknown]

NARRATIVE: CASE EVENT DATE: 20220101
